FAERS Safety Report 6640043-0 (Version None)
Quarter: 2010Q1

REPORT INFORMATION
  Report Type: 
  Country: None (occurrence: None)
  Receive Date: 20100315
  Receipt Date: 20100226
  Transmission Date: 20100710
  Serious: Yes (Hospitalization)
  Sender: FDA-Public Use
  Company Number: 2010SP005278

PATIENT
  Age: 47 Year
  Sex: Female

DRUGS (14)
  1. MIRTAZAPINE [Suspect]
     Indication: DEPRESSION
     Dosage: 15 MG;HS;PO ; 15 MG;QD;PO ; 30 MG;QD;PO
     Route: 048
     Dates: end: 20100114
  2. MIRTAZAPINE [Suspect]
     Indication: DEPRESSION
     Dosage: 15 MG;HS;PO ; 15 MG;QD;PO ; 30 MG;QD;PO
     Route: 048
     Dates: start: 20100115, end: 20100118
  3. MIRTAZAPINE [Suspect]
     Indication: DEPRESSION
     Dosage: 15 MG;HS;PO ; 15 MG;QD;PO ; 30 MG;QD;PO
     Route: 048
     Dates: start: 20100119
  4. FLUVOXAMINE MALEATE [Suspect]
     Indication: DRUG USE FOR UNKNOWN INDICATION
     Dosage: 50 MG;PO ; 100 MG;PO ; 75 MG;PO
     Route: 048
     Dates: end: 20100114
  5. FLUVOXAMINE MALEATE [Suspect]
     Indication: DRUG USE FOR UNKNOWN INDICATION
     Dosage: 50 MG;PO ; 100 MG;PO ; 75 MG;PO
     Route: 048
     Dates: start: 20100115, end: 20100118
  6. FLUVOXAMINE MALEATE [Suspect]
     Indication: DRUG USE FOR UNKNOWN INDICATION
     Dosage: 50 MG;PO ; 100 MG;PO ; 75 MG;PO
     Route: 048
     Dates: start: 20100119
  7. SULTANOL (SALBUTAMOL) [Suspect]
     Indication: DRUG USE FOR UNKNOWN INDICATION
     Dosage: PRN;INH
     Route: 055
  8. BIOFERMIN [Concomitant]
  9. TRANCOLON [Concomitant]
  10. EPINASTINE [Concomitant]
  11. HALCION [Concomitant]
  12. ROHYPNOL [Concomitant]
  13. ZOPICLONE [Concomitant]
  14. ETIZOLAM [Concomitant]

REACTIONS (3)
  - PALPITATIONS [None]
  - STRESS [None]
  - TACHYCARDIA [None]
